FAERS Safety Report 7932389-0 (Version None)
Quarter: 2011Q4

REPORT INFORMATION
  Report Type: 
  Country: None (occurrence: None)
  Receive Date: 20111122
  Receipt Date: 20111117
  Transmission Date: 20120403
  Serious: Yes (Other)
  Sender: FDA-Public Use
  Company Number: DE-BRISTOL-MYERS SQUIBB COMPANY-16117913

PATIENT
  Age: 67 Year
  Sex: Female
  Weight: 65 kg

DRUGS (1)
  1. YERVOY [Suspect]
     Indication: MALIGNANT MELANOMA
     Dosage: 1DF=195 (UNITS NOT SPECIFIED). 02AUG2011,23AUG2011 AND 13SEP11 . INFUSION
     Route: 042
     Dates: start: 20110802, end: 20110813

REACTIONS (9)
  - DECREASED APPETITE [None]
  - PNEUMONITIS [None]
  - SINUS TACHYCARDIA [None]
  - GENERAL PHYSICAL HEALTH DETERIORATION [None]
  - SENSATION OF HEAVINESS [None]
  - RESTLESSNESS [None]
  - DYSPNOEA [None]
  - HYPERTHYROIDISM [None]
  - PERICARDIAL EFFUSION [None]
